FAERS Safety Report 16656162 (Version 1)
Quarter: 2019Q3

REPORT INFORMATION
  Report Type: Spontaneous
  Country: US (occurrence: US)
  Receive Date: 20190618
  Receipt Date: 20190618
  Transmission Date: 20191004
  Serious: Yes (Hospitalization)
  Sender: FDA-Public Use
  Company Number: None

PATIENT
  Sex: Female

DRUGS (6)
  1. AMLODIPINE TAB [Concomitant]
  2. FORTEO [Suspect]
     Active Substance: TERIPARATIDE
     Indication: PRODUCT USED FOR UNKNOWN INDICATION
     Route: 065
  3. FEXOFENADINE TAB [Concomitant]
  4. HYDROCORT TAB [Concomitant]
  5. VALSARTAN TAB [Concomitant]
     Active Substance: VALSARTAN
  6. VIOS MIS [Concomitant]

REACTIONS (1)
  - Hip fracture [None]
